FAERS Safety Report 19194421 (Version 1)
Quarter: 2021Q2

REPORT INFORMATION
  Report Type: Spontaneous
  Country: CN (occurrence: CN)
  Receive Date: 20210429
  Receipt Date: 20210429
  Transmission Date: 20210717
  Serious: Yes (Hospitalization)
  Sender: FDA-Public Use
  Company Number: CN-PFIZER INC-2021426588

PATIENT
  Age: 63 Year
  Sex: Female
  Weight: 60 kg

DRUGS (3)
  1. AI RUI NI [Suspect]
     Active Substance: PYROTINIB MALEATE
     Indication: THERAPEUTIC PROCEDURE
     Dosage: 400 MG, 1X/DAY
     Route: 048
     Dates: start: 20210326, end: 20210402
  2. PHARMORUBICIN [Suspect]
     Active Substance: EPIRUBICIN
     Indication: THERAPEUTIC PROCEDURE
     Dosage: 165 MG, 1X/DAY
     Route: 041
     Dates: start: 20210326, end: 20210326
  3. ENDOXAN [CYCLOPHOSPHAMIDE] [Suspect]
     Active Substance: CYCLOPHOSPHAMIDE
     Indication: THERAPEUTIC PROCEDURE
     Dosage: 1 G, 1X/DAY
     Route: 041
     Dates: start: 20210326, end: 20210326

REACTIONS (2)
  - Pyrexia [Unknown]
  - Full blood count decreased [Recovering/Resolving]

NARRATIVE: CASE EVENT DATE: 20210402
